FAERS Safety Report 7725032-7 (Version None)
Quarter: 2011Q3

REPORT INFORMATION
  Report Type: 
  Country: None (occurrence: None)
  Receive Date: 20110901
  Receipt Date: 20110823
  Transmission Date: 20111222
  Serious: Yes (Hospitalization, Other)
  Sender: FDA-Public Use
  Company Number: US-BAYER-201041672NA

PATIENT
  Age: 42 Year
  Sex: Female

DRUGS (8)
  1. MINOCYCLINE HCL [Concomitant]
     Indication: ACNE
     Dosage: UNK
     Route: 048
     Dates: start: 19800101
  2. YASMIN [Suspect]
     Indication: ACNE
  3. YASMIN [Suspect]
     Indication: PREMENSTRUAL SYNDROME
     Dosage: UNK UNK, UNK
     Route: 048
     Dates: start: 20031201, end: 20070222
  4. CENTRAL-VITE [Concomitant]
     Indication: UNEVALUABLE EVENT
     Dosage: UNK UNK, QD
     Route: 048
     Dates: start: 19820101
  5. MINOCYCLINE HCL [Concomitant]
     Indication: ROSACEA
  6. TRAMADOL HCL [Concomitant]
     Indication: BACK PAIN
     Dosage: UNK UNK, TID
     Route: 048
     Dates: start: 20051101
  7. SKELAXIN [Concomitant]
     Indication: BACK PAIN
     Dosage: UNK UNK, QD
     Route: 048
     Dates: start: 20070101
  8. LIDODERM [Concomitant]
     Indication: BACK PAIN
     Dosage: UNK UNK, QD
     Dates: start: 20061101

REACTIONS (4)
  - PULMONARY EMBOLISM [None]
  - PAIN IN EXTREMITY [None]
  - OEDEMA PERIPHERAL [None]
  - DEEP VEIN THROMBOSIS [None]
